FAERS Safety Report 8243889-0 (Version None)
Quarter: 2012Q1

REPORT INFORMATION
  Report Type: 
  Country: None (occurrence: None)
  Receive Date: 20120329
  Receipt Date: 20110428
  Transmission Date: 20120608
  Serious: No
  Sender: FDA-Public Use
  Company Number: US-MYLANLABS-2011S1007156

PATIENT
  Age: 47 Year
  Sex: Female
  Weight: 62.6 kg

DRUGS (9)
  1. CALCIUM CARBONATE [Concomitant]
  2. MULTI-VITAMINS [Concomitant]
  3. FISH OIL [Concomitant]
  4. ESTRADIOL [Suspect]
     Indication: HORMONE REPLACEMENT THERAPY
     Dosage: CHANGED TWICE A WEEK
     Route: 062
     Dates: start: 20110215, end: 20110221
  5. ESTRADIOL [Suspect]
     Indication: MENOPAUSE
     Dosage: CHANGED TWICE A WEEK
     Route: 062
     Dates: start: 20110215, end: 20110221
  6. NAPROXEN [Concomitant]
  7. OMEPRAZOLE [Concomitant]
  8. METOPROLOL SUCCINATE [Concomitant]
  9. ASCORBIC ACID [Concomitant]

REACTIONS (7)
  - APPLICATION SITE PRURITUS [None]
  - APPLICATION SITE DRYNESS [None]
  - APPLICATION SITE EXFOLIATION [None]
  - APPLICATION SITE SCAR [None]
  - APPLICATION SITE PAIN [None]
  - APPLICATION SITE HAEMATOMA [None]
  - APPLICATION SITE RASH [None]
